FAERS Safety Report 4434282-7 (Version None)
Quarter: 2004Q3

REPORT INFORMATION
  Report Type: 
  Country: None (occurrence: None)
  Receive Date: 20040825
  Receipt Date: 20040809
  Transmission Date: 20050211
  Serious: Yes (Hospitalization)
  Sender: FDA-Public Use
  Company Number: DSA_24824_2004

PATIENT
  Age: 78 Year

DRUGS (8)
  1. DILTIAZEM [Suspect]
     Indication: MYOCARDIAL ISCHAEMIA
     Dosage: 120 MG BID PO
     Route: 048
     Dates: start: 20040623, end: 20040701
  2. MINITRAN [Concomitant]
  3. CARDIOASPIRIN [Concomitant]
  4. GLIBOMET [Concomitant]
  5. FOSAMAX [Concomitant]
  6. PROZAC [Concomitant]
  7. ZESTRIL [Concomitant]
  8. IGROTON [Concomitant]

REACTIONS (13)
  - AZOTAEMIA [None]
  - BLOOD ALKALINE PHOSPHATASE INCREASED [None]
  - BLOOD CREATININE INCREASED [None]
  - BLOOD FIBRINOGEN INCREASED [None]
  - BLOOD LACTATE DEHYDROGENASE INCREASED [None]
  - BLOOD URIC ACID INCREASED [None]
  - DERMATITIS EXFOLIATIVE [None]
  - ERYTHEMA MULTIFORME [None]
  - GAMMA-GLUTAMYLTRANSFERASE INCREASED [None]
  - HAEMOGLOBIN DECREASED [None]
  - NEUTROPHIL PERCENTAGE INCREASED [None]
  - SKIN DESQUAMATION [None]
  - WHITE BLOOD CELL COUNT INCREASED [None]
